FAERS Safety Report 15100271 (Version 6)
Quarter: 2021Q4

REPORT INFORMATION
  Report Type: Other
  Country: US (occurrence: US)
  Receive Date: 20180703
  Receipt Date: 20211029
  Transmission Date: 20220303
  Serious: Yes (Other)
  Sender: FDA-Public Use
  Company Number: US-ROCHE-2146141

PATIENT
  Age: 40 Year
  Sex: Female

DRUGS (3)
  1. OCREVUS [Suspect]
     Active Substance: OCRELIZUMAB
     Indication: Relapsing multiple sclerosis
     Route: 042
     Dates: start: 20171001
  2. OCREVUS [Suspect]
     Active Substance: OCRELIZUMAB
     Route: 042
     Dates: start: 20171010
  3. OCREVUS [Suspect]
     Active Substance: OCRELIZUMAB
     Route: 042
     Dates: start: 20171025

REACTIONS (13)
  - Loss of consciousness [Recovering/Resolving]
  - Urinary tract infection [Unknown]
  - Fatigue [Recovering/Resolving]
  - Feeling abnormal [Recovering/Resolving]
  - Pulse absent [Recovering/Resolving]
  - Dysgeusia [Recovering/Resolving]
  - Pyrexia [Unknown]
  - Gastrooesophageal reflux disease [Unknown]
  - Odynophagia [Unknown]
  - Cognitive disorder [Unknown]
  - Vulvovaginal dryness [Unknown]
  - Urinary tract disorder [Unknown]
  - Fall [Unknown]

NARRATIVE: CASE EVENT DATE: 20171001
